FAERS Safety Report 8112376 (Version 3)
Quarter: 2014Q3

REPORT INFORMATION
  Report Type: Spontaneous
  Country: TW (occurrence: TW)
  Receive Date: 20110830
  Receipt Date: 20140729
  Transmission Date: 20150326
  Serious: Yes (Hospitalization, Other)
  Sender: FDA-Public Use
  Company Number: TW-RANBAXY-2011RR-47057

PATIENT
  Age: 26 Year
  Sex: Male

DRUGS (3)
  1. ZOLPIDEM [Suspect]
     Active Substance: ZOLPIDEM\ZOLPIDEM TARTRATE
     Indication: PRODUCT USED FOR UNKNOWN INDICATION
     Dosage: APPROXIMATELY 40 TABLETS OF 10 MG
     Route: 048
  2. OLANZAPINE. [Concomitant]
     Active Substance: OLANZAPINE
     Indication: PRODUCT USED FOR UNKNOWN INDICATION
     Route: 030
  3. ZOLPIDEM [Suspect]
     Active Substance: ZOLPIDEM\ZOLPIDEM TARTRATE
     Indication: PRODUCT USED FOR UNKNOWN INDICATION
     Dosage: 200-300 MG/DAY
     Route: 065

REACTIONS (14)
  - Drug withdrawal syndrome [Unknown]
  - Confusional state [Recovering/Resolving]
  - Agitation [Recovering/Resolving]
  - Intentional overdose [Unknown]
  - Suicide attempt [Unknown]
  - Agitation [Unknown]
  - Chest discomfort [Recovering/Resolving]
  - Depression [Recovering/Resolving]
  - Delirium [Unknown]
  - Anxiety [Unknown]
  - Insomnia [Unknown]
  - Sinus tachycardia [Recovering/Resolving]
  - Drug dependence [Unknown]
  - Drug abuse [Unknown]
